FAERS Safety Report 6731630-X (Version None)
Quarter: 2010Q2

REPORT INFORMATION
  Report Type: 
  Country: None (occurrence: None)
  Receive Date: 20100518
  Receipt Date: 20100518
  Transmission Date: 20101027
  Serious: Yes (Hospitalization)
  Sender: FDA-Public Use
  Company Number: None

PATIENT
  Age: 73 Year
  Sex: Male
  Weight: 71.2147 kg

DRUGS (10)
  1. ARICEPT [Suspect]
     Indication: DEMENTIA ALZHEIMER'S TYPE
     Dosage: 1 TABLET QHS PO
     Route: 048
     Dates: start: 20091221, end: 20100216
  2. BROMOCRIPTINE MESYLATE [Concomitant]
  3. BUSPIRONE HYDROCHLORODE [Concomitant]
  4. DILTIAZEM HYDROCHLORIDE [Concomitant]
  5. FLOMAX [Concomitant]
  6. MELOXICAM [Concomitant]
  7. OMEPRAZOLE [Concomitant]
  8. ROZEREM [Concomitant]
  9. RAMIPRIL [Concomitant]
  10. ZETIA [Concomitant]

REACTIONS (2)
  - LIVER FUNCTION TEST ABNORMAL [None]
  - TREMOR [None]
